FAERS Safety Report 7442955-7 (Version None)
Quarter: 2011Q2

REPORT INFORMATION
  Report Type: 
  Country: None (occurrence: None)
  Receive Date: 20110425
  Receipt Date: 20110425
  Transmission Date: 20111010
  Serious: Yes (Other)
  Sender: FDA-Public Use
  Company Number: None

PATIENT
  Age: 42 Year
  Sex: Female
  Weight: 67.1324 kg

DRUGS (2)
  1. LEVAQUIN [Suspect]
     Indication: SINUSITIS
     Dosage: 1 TABLET 1XDAY PO
     Route: 048
     Dates: start: 20110402, end: 20110405
  2. LEVAQUIN [Suspect]
     Indication: DISEASE RECURRENCE
     Dosage: 1 TABLET 1XDAY PO
     Route: 048
     Dates: start: 20110402, end: 20110405

REACTIONS (8)
  - IMPAIRED WORK ABILITY [None]
  - ARTHRALGIA [None]
  - MUSCULOSKELETAL PAIN [None]
  - BURNING SENSATION [None]
  - PAIN IN EXTREMITY [None]
  - TENDON DISORDER [None]
  - SWELLING [None]
  - ACTIVITIES OF DAILY LIVING IMPAIRED [None]
